FAERS Safety Report 6321774-9 (Version None)
Quarter: 2009Q3

REPORT INFORMATION
  Report Type: 
  Country: None (occurrence: None)
  Receive Date: 20090819
  Receipt Date: 20090805
  Transmission Date: 20100115
  Serious: Yes (Hospitalization)
  Sender: FDA-Public Use
  Company Number: 8049306

PATIENT
  Age: 72 Year
  Sex: Female
  Weight: 51.5 kg

DRUGS (14)
  1. CDP870 [Suspect]
     Indication: RHEUMATOID ARTHRITIS
     Dosage: 200 MG SC
     Route: 058
     Dates: start: 20090625, end: 20090716
  2. REBAMIPIDE [Concomitant]
  3. METHOTREXATE [Concomitant]
  4. PREDNISOLONE [Concomitant]
  5. LOXOPROFEN SODIUM [Concomitant]
  6. FOLIC ACID [Concomitant]
  7. FAMOTIDINE [Concomitant]
  8. NIFEDIPINE [Concomitant]
  9. ATORVASTATIN CALCIUM [Concomitant]
  10. ALFACALCIDOL [Concomitant]
  11. SODIUM RISEDRONATE HYDRATE [Concomitant]
  12. PIRENOXINE [Concomitant]
  13. OLOPATADINE HYDROCHLORIDE [Concomitant]
  14. TRIAZOLAM [Concomitant]

REACTIONS (3)
  - DECREASED APPETITE [None]
  - PNEUMOCYSTIS JIROVECI PNEUMONIA [None]
  - STOMATITIS [None]
